FAERS Safety Report 10672259 (Version 1)
Quarter: 2014Q4

REPORT INFORMATION
  Report Type: Spontaneous
  Country: IT (occurrence: IT)
  Receive Date: 20141223
  Receipt Date: 20141223
  Transmission Date: 20150529
  Serious: Yes (Hospitalization)
  Sender: FDA-Public Use
  Company Number: IT-BAYER-2014-187141

PATIENT
  Age: 63 Year
  Sex: Female

DRUGS (3)
  1. TRIATEC [Suspect]
     Active Substance: RAMIPRIL
     Indication: DRUG ABUSE
     Dosage: 42 DF, ONCE
     Route: 048
     Dates: start: 20140303, end: 20140303
  2. ASPIRINA [Suspect]
     Active Substance: ASPIRIN
     Indication: DRUG ABUSE
     Dosage: 20 G, ONCE
     Route: 048
     Dates: start: 20140303, end: 20140303
  3. FELISON [Suspect]
     Active Substance: FLURAZEPAM MONOHYDROCHLORIDE
     Dosage: 45 DF, ONCE
     Route: 048
     Dates: start: 20140303, end: 20140303

REACTIONS (2)
  - Drug abuse [Unknown]
  - Coma [Unknown]

NARRATIVE: CASE EVENT DATE: 20140303
